FAERS Safety Report 5376612-8 (Version None)
Quarter: 2007Q2

REPORT INFORMATION
  Report Type: 
  Country: None (occurrence: None)
  Receive Date: 20070628
  Receipt Date: 20070621
  Transmission Date: 20071010
  Serious: Yes (Hospitalization)
  Sender: FDA-Public Use
  Company Number: 07-001184

PATIENT
  Age: 83 Year
  Sex: Male
  Weight: 102 kg

DRUGS (9)
  1. ERYC [Suspect]
     Indication: PNEUMONIA PRIMARY ATYPICAL
     Dosage: 500 MG, QID, ORAL
     Route: 048
  2. ERYTHROMYCIN [Suspect]
     Indication: PNEUMONIA PRIMARY ATYPICAL
     Dosage: 50 MG, QID, INTRAVENOUS
     Route: 042
  3. SIMVASTATIN [Suspect]
     Dosage: 80 MG, QD
  4. METOPROLOL TARTRATE [Concomitant]
  5. AMLODIPINE [Concomitant]
  6. HYDROCHLOROTHIAZIDE W/VALSARTAN (HYDROCHLOROTHIAZIDE, VALSARTAN) [Concomitant]
  7. ASPIRIN [Concomitant]
  8. METHOTREXATE [Concomitant]
  9. FUROSEMIDE [Concomitant]

REACTIONS (7)
  - CREATININE RENAL CLEARANCE [None]
  - DRUG INTERACTION [None]
  - MOVEMENT DISORDER [None]
  - RENAL IMPAIRMENT [None]
  - RESPIRATORY DISORDER [None]
  - RHABDOMYOLYSIS [None]
  - WEIGHT DECREASED [None]
